FAERS Safety Report 6594173-2 (Version None)
Quarter: 2010Q1

REPORT INFORMATION
  Report Type: 
  Country: None (occurrence: None)
  Receive Date: 20100222
  Receipt Date: 20100211
  Transmission Date: 20100710
  Serious: Yes (Hospitalization)
  Sender: FDA-Public Use
  Company Number: US-ROCHE-685311

PATIENT
  Age: 73 Year
  Sex: Female

DRUGS (5)
  1. MYCOPHENOLATE MOFETIL [Suspect]
     Route: 065
  2. DACLIZUMAB [Suspect]
     Route: 065
  3. ANTI-THYMOCYTE GLOBULIN NOS [Suspect]
     Route: 065
  4. TACROLIMUS [Suspect]
     Route: 065
  5. METHYLPREDNISOLONE [Suspect]
     Dosage: DRUG: METHYLPREDNISONE.
     Route: 065

REACTIONS (9)
  - ARRHYTHMIA [None]
  - BACTERAEMIA [None]
  - CELLULITIS [None]
  - CHEST X-RAY ABNORMAL [None]
  - MYCOBACTERIUM ABSCESSUS INFECTION [None]
  - RENAL TUBULAR NECROSIS [None]
  - RESPIRATORY SYNCYTIAL VIRUS BRONCHIOLITIS [None]
  - TRANSPLANT FAILURE [None]
  - URINARY TRACT INFECTION [None]
